FAERS Safety Report 14368741 (Version 2)
Quarter: 2018Q2

REPORT INFORMATION
  Report Type: Spontaneous
  Country: FR (occurrence: FR)
  Receive Date: 20180109
  Receipt Date: 20180418
  Transmission Date: 20180711
  Serious: Yes (Life-Threatening, Hospitalization, Other)
  Sender: FDA-Public Use
  Company Number: FR-BAUSCH-BL-2017-036466

PATIENT
  Age: 13 Year
  Sex: Male

DRUGS (20)
  1. METHOTREXATE. [Suspect]
     Active Substance: METHOTREXATE
     Indication: ACUTE LYMPHOCYTIC LEUKAEMIA
     Dosage: 15 MG, 1X/DAY:QD
     Route: 037
     Dates: start: 20161129
  2. DEXAMETHASONE. [Suspect]
     Active Substance: DEXAMETHASONE
     Indication: ACUTE LYMPHOCYTIC LEUKAEMIA
     Route: 048
     Dates: start: 20171002, end: 20171030
  3. ONCASPAR [Suspect]
     Active Substance: PEGASPARGASE
     Indication: ACUTE LYMPHOCYTIC LEUKAEMIA
     Dosage: 4350 IU, 1X/DAY:QD
     Route: 042
     Dates: start: 20161205, end: 20161205
  4. HYDROCORTISONE. [Suspect]
     Active Substance: HYDROCORTISONE
     Dosage: 15 MG, 1X/DAY:QD
     Route: 037
     Dates: start: 20171005, end: 20171120
  5. CYTARABINE. [Suspect]
     Active Substance: CYTARABINE
     Indication: ACUTE LYMPHOCYTIC LEUKAEMIA
     Dosage: 30 MG, 1X/DAY:QD
     Route: 037
     Dates: start: 20161202
  6. CYTARABINE. [Suspect]
     Active Substance: CYTARABINE
     Dosage: 30 MG, 1X/DAY:QD
     Route: 037
     Dates: start: 20171005, end: 20171120
  7. ONCASPAR [Suspect]
     Active Substance: PEGASPARGASE
     Dosage: 4300 UNK, UNK
     Route: 042
     Dates: start: 20171005, end: 20171208
  8. METHOTREXATE. [Suspect]
     Active Substance: METHOTREXATE
     Dosage: 8200 MG, UNK
     Route: 042
     Dates: start: 20170815, end: 20170912
  9. VP-16 [Suspect]
     Active Substance: ETOPOSIDE
     Indication: ACUTE LYMPHOCYTIC LEUKAEMIA
     Dosage: 240 MG, 1X/DAY:QD
     Route: 042
     Dates: start: 20170319, end: 20170321
  10. CYTARABINE. [Suspect]
     Active Substance: CYTARABINE
     Dosage: 110 MG, 1X/DAY:QD
     Route: 042
     Dates: start: 20170115
  11. VINCRISTINE [Suspect]
     Active Substance: VINCRISTINE
     Indication: ACUTE LYMPHOCYTIC LEUKAEMIA
     Dosage: 2 MG, 1X/DAY:QD
     Route: 042
     Dates: start: 20161130
  12. PREDNISONE. [Suspect]
     Active Substance: PREDNISONE
     Indication: ACUTE LYMPHOCYTIC LEUKAEMIA
     Dosage: 100 MG, 1X/DAY:QD
     Route: 048
     Dates: start: 20161129, end: 20161228
  13. HYDROCORTISONE. [Suspect]
     Active Substance: HYDROCORTISONE
     Indication: ACUTE LYMPHOCYTIC LEUKAEMIA
     Dosage: 15 MG, 1X/DAY:QD
     Route: 037
     Dates: start: 20161202
  14. METHOTREXATE. [Suspect]
     Active Substance: METHOTREXATE
     Dosage: 15 MG, 1X/DAY:QD
     Route: 037
     Dates: start: 20171005, end: 20171120
  15. 6-MERCAPTOPURINE MONOHYDRATE [Suspect]
     Active Substance: MERCAPTOPURINE
     Dosage: 40 MG, 1X/DAY:QD
     Route: 048
     Dates: start: 20170808, end: 20170819
  16. VINCRISTINE [Suspect]
     Active Substance: VINCRISTINE
     Dosage: 2 MG, 1X/DAY:QD
     Route: 042
     Dates: start: 20171002, end: 20171215
  17. DAUNORUBICIN [Suspect]
     Active Substance: DAUNORUBICIN
     Indication: ACUTE LYMPHOCYTIC LEUKAEMIA
     Dosage: 65 MG, 1X/DAY:QD
     Route: 042
     Dates: start: 20161130, end: 20161222
  18. 6-MERCAPTOPURINE MONOHYDRATE [Suspect]
     Active Substance: MERCAPTOPURINE
     Indication: ACUTE LYMPHOCYTIC LEUKAEMIA
     Dosage: 90 MG, 1X/DAY:QD
     Route: 048
     Dates: start: 20170113, end: 20170521
  19. CYCLOPHOSPHAMIDE. [Suspect]
     Active Substance: CYCLOPHOSPHAMIDE
     Indication: ACUTE LYMPHOCYTIC LEUKAEMIA
     Dosage: 1680 MG, 1X/DAY:QD
     Route: 042
     Dates: start: 20161202
  20. DOXORUBICIN [Suspect]
     Active Substance: DOXORUBICIN
     Indication: ACUTE LYMPHOCYTIC LEUKAEMIA
     Route: 042
     Dates: start: 20171002, end: 20171024

REACTIONS (3)
  - Metabolic acidosis [Recovered/Resolved]
  - Septic shock [Recovered/Resolved]
  - Diabetes mellitus [Recovered/Resolved]

NARRATIVE: CASE EVENT DATE: 20171009
